FAERS Safety Report 7553265-1 (Version None)
Quarter: 2011Q2

REPORT INFORMATION
  Report Type: 
  Country: None (occurrence: None)
  Receive Date: 20110617
  Receipt Date: 20110607
  Transmission Date: 20111010
  Serious: No
  Sender: FDA-Public Use
  Company Number: US-BIOGENIDEC-2011BI021070

PATIENT
  Age: 45 Year
  Sex: Female

DRUGS (3)
  1. TYSABRI [Suspect]
     Indication: MULTIPLE SCLEROSIS
     Route: 042
     Dates: start: 20071206
  2. BENADRYL [Concomitant]
     Indication: PREMEDICATION
  3. BENADRYL [Concomitant]

REACTIONS (4)
  - ARTHRALGIA [None]
  - PRURITUS [None]
  - FATIGUE [None]
  - PAIN IN EXTREMITY [None]
